FAERS Safety Report 7771418-4 (Version None)
Quarter: 2011Q3

REPORT INFORMATION
  Report Type: 
  Country: None (occurrence: None)
  Receive Date: 20110922
  Receipt Date: 20110113
  Transmission Date: 20111222
  Serious: Yes (Hospitalization)
  Sender: FDA-Public Use
  Company Number: US-ASTRAZENECA-2008UW16241

PATIENT
  Age: 11 Year
  Sex: Female
  Weight: 68.7 kg

DRUGS (14)
  1. SEROQUEL [Suspect]
     Indication: OPPOSITIONAL DEFIANT DISORDER
     Dosage: 25 MG, 100 MG, 200 MG
     Route: 048
     Dates: start: 20030101, end: 20050801
  2. ZYPREXA [Concomitant]
     Dates: start: 20030101
  3. TRILEPTAL [Concomitant]
     Route: 048
     Dates: start: 20030208
  4. SEROQUEL [Suspect]
     Indication: ATTENTION DEFICIT/HYPERACTIVITY DISORDER
     Dosage: 25 MG, 100 MG, 200 MG
     Route: 048
     Dates: start: 20030101, end: 20050801
  5. TRILEPTAL [Concomitant]
     Route: 048
     Dates: start: 20030107
  6. ADDERALL 5 [Concomitant]
     Dosage: 20 MG TK 1 C PO QAM, 7.5 MG BID
     Route: 048
     Dates: start: 20030107
  7. SEROQUEL [Suspect]
     Dosage: 75 MG TO 400 MG
     Route: 048
     Dates: start: 20030318
  8. SEROQUEL [Suspect]
     Dosage: 25 MG TK 1 T PO TID, 100 MG PO QAM 1 NOON, 200 MG PO QPM
     Route: 048
     Dates: start: 20030107
  9. SEROQUEL [Suspect]
     Dosage: 75 MG TO 400 MG
     Route: 048
     Dates: start: 20030318
  10. TENEX [Concomitant]
     Route: 048
     Dates: start: 20051115
  11. CONCERTA [Concomitant]
     Route: 048
     Dates: start: 20051115
  12. SEROQUEL [Suspect]
     Dosage: 25 MG TK 1 T PO TID, 100 MG PO QAM 1 NOON, 200 MG PO QPM
     Route: 048
     Dates: start: 20030107
  13. ADDERALL 5 [Concomitant]
     Dosage: 15 MG TO 20 MG
     Route: 048
     Dates: start: 20030318
  14. PROZAC [Concomitant]
     Route: 048
     Dates: start: 20051115

REACTIONS (3)
  - TYPE 2 DIABETES MELLITUS [None]
  - OBESITY [None]
  - DEPRESSION [None]
